FAERS Safety Report 8622238-X (Version None)
Quarter: 2012Q3

REPORT INFORMATION
  Report Type: 
  Country: None (occurrence: None)
  Receive Date: 20120827
  Receipt Date: 20120822
  Transmission Date: 20120928
  Serious: Yes (Life-Threatening, Hospitalization, Disabling, Other)
  Sender: FDA-Public Use
  Company Number: JP-009507513-1201USA01379

PATIENT

DRUGS (7)
  1. LOXOPROFEN [Concomitant]
     Indication: PAIN IN EXTREMITY
     Dosage: 60 MG, TID
     Route: 048
     Dates: start: 20081104
  2. ZOLINZA [Suspect]
     Indication: ANAPLASTIC LARGE CELL LYMPHOMA T- AND NULL-CELL TYPES
     Dosage: 400 MG, QD
     Route: 048
     Dates: start: 20111121, end: 20111205
  3. LANSOPRAZOLE [Concomitant]
     Indication: PROPHYLAXIS
     Dosage: 15 MG, QD
     Route: 048
     Dates: start: 20110314
  4. ZOLINZA [Suspect]
     Dosage: 300 MG, UNK
     Route: 048
     Dates: start: 20111214
  5. LYRICA [Concomitant]
     Indication: PAIN IN EXTREMITY
     Dosage: 75 MG, QD
     Route: 048
     Dates: start: 20110215
  6. VITAMIN B12 [Concomitant]
     Indication: HYPOAESTHESIA
     Dosage: 500 ?G, TID
     Route: 048
     Dates: start: 20090317
  7. MUCOSTA [Concomitant]
     Indication: PROPHYLAXIS
     Dosage: 100 MG, TID
     Route: 048
     Dates: start: 20081104

REACTIONS (7)
  - DECREASED APPETITE [None]
  - FOLLICULITIS [None]
  - DERMATITIS ACNEIFORM [None]
  - MALAISE [None]
  - DYSGEUSIA [None]
  - RENAL FAILURE ACUTE [None]
  - PLATELET COUNT DECREASED [None]
